FAERS Safety Report 24774774 (Version 1)
Quarter: 2024Q4

REPORT INFORMATION
  Report Type: Report from Study
  Country: DE (occurrence: DE)
  Receive Date: 20241226
  Receipt Date: 20241226
  Transmission Date: 20250115
  Serious: Yes (Hospitalization)
  Sender: ABBVIE
  Company Number: DE-ABBVIE-6057642

PATIENT
  Age: 72 Year
  Sex: Male

DRUGS (8)
  1. CARBIDOPA\LEVODOPA [Suspect]
     Active Substance: CARBIDOPA\LEVODOPA
     Indication: Parkinson^s disease
     Dosage: MORNING DOSE: 8 ML ?CONTINUOUS FLOW RATE: 3.6 ML/H FROM 6:00 A.M. TO 11:00 P.M.
     Route: 050
     Dates: start: 20161007
  2. CARBIDOPA\LEVODOPA [Suspect]
     Active Substance: CARBIDOPA\LEVODOPA
     Dosage: MORNING DOSE: 8 ML ?CONTINUOUS FLOW RATE: 3.8 ML/H FROM 6:00 A.M. TO 11:00 P.M. ?EXTRA DOSES: 2.0...
     Route: 050
     Dates: start: 20241122
  3. CARBIDOPA\LEVODOPA [Suspect]
     Active Substance: CARBIDOPA\LEVODOPA
     Route: 050
     Dates: start: 201910
  4. MELPERONE [Concomitant]
     Active Substance: MELPERONE
     Indication: Product used for unknown indication
     Dosage: 25 MG IF NECESSARY
  5. QUETIAPINE [Concomitant]
     Active Substance: QUETIAPINE
     Indication: Product used for unknown indication
     Dosage: 25 MG 1-0-2
  6. MIRTAZAPINE [Concomitant]
     Active Substance: MIRTAZAPINE
     Indication: Product used for unknown indication
     Dosage: 15 MG 0-0-0-1
  7. BENSERAZIDE HYDROCHLORIDE\LEVODOPA [Concomitant]
     Active Substance: BENSERAZIDE HYDROCHLORIDE\LEVODOPA
     Indication: Product used for unknown indication
     Dosage: 100 MG 0-0-0-2
  8. ONGENTYS [Concomitant]
     Active Substance: OPICAPONE
     Indication: Product used for unknown indication

REACTIONS (15)
  - Aggression [Unknown]
  - On and off phenomenon [Unknown]
  - Mobility decreased [Unknown]
  - Dopamine dysregulation syndrome [Unknown]
  - Impulse-control disorder [Unknown]
  - Hallucination, visual [Not Recovered/Not Resolved]
  - Therapeutic product effect variable [Unknown]
  - Parkinson^s disease [Unknown]
  - Psychotic disorder [Unknown]
  - Hyperkinesia [Unknown]
  - Restlessness [Unknown]
  - Nightmare [Unknown]
  - Spinal osteoarthritis [Unknown]
  - Vertebral foraminal stenosis [Unknown]
  - Hypertension [Unknown]

NARRATIVE: CASE EVENT DATE: 20230201
